FAERS Safety Report 10651271 (Version 3)
Quarter: 2016Q3

REPORT INFORMATION
  Report Type: Spontaneous
  Country: US (occurrence: US)
  Receive Date: 20141215
  Receipt Date: 20160930
  Transmission Date: 20161109
  Serious: Yes (Other)
  Sender: FDA-Public Use
  Company Number: US-AUROBINDO-AUR-APL-2014-12952

PATIENT
  Age: 85 Year
  Sex: Female
  Weight: 82 kg

DRUGS (6)
  1. GABAPENTIN CAPSULES 300 MG [Suspect]
     Active Substance: GABAPENTIN
     Indication: HERPES ZOSTER
     Dosage: 300 MG, UNK
     Route: 048
  2. COREG [Concomitant]
     Active Substance: CARVEDILOL
     Indication: PRODUCT USED FOR UNKNOWN INDICATION
     Route: 065
  3. AMLODIPINE [Concomitant]
     Active Substance: AMLODIPINE BESYLATE
     Indication: PRODUCT USED FOR UNKNOWN INDICATION
     Route: 065
  4. POTASSIUM CHLORIDE. [Concomitant]
     Active Substance: POTASSIUM CHLORIDE
     Indication: PRODUCT USED FOR UNKNOWN INDICATION
     Route: 065
  5. GABAPENTIN CAPSULES 300 MG [Suspect]
     Active Substance: GABAPENTIN
     Indication: PRURITUS
  6. LASIX [Concomitant]
     Active Substance: FUROSEMIDE
     Indication: PRODUCT USED FOR UNKNOWN INDICATION
     Route: 065

REACTIONS (4)
  - Weight increased [Recovered/Resolved]
  - Peripheral swelling [Recovered/Resolved]
  - Off label use [Recovered/Resolved]
  - Herpes zoster [Recovered/Resolved]
